FAERS Safety Report 15109919 (Version 4)
Quarter: 2018Q4

REPORT INFORMATION
  Report Type: Report from Study
  Country: ES (occurrence: ES)
  Receive Date: 20180705
  Receipt Date: 20181226
  Transmission Date: 20190204
  Serious: Yes (Other)
  Sender: FDA-Public Use
  Company Number: ES-PFIZER INC-2018015036

PATIENT
  Age: 73 Year
  Sex: Female
  Weight: 82 kg

DRUGS (8)
  1. RAMIPRIL. [Concomitant]
     Active Substance: RAMIPRIL
     Dosage: 5 MG, UNK
     Route: 065
     Dates: start: 20170405, end: 20170427
  2. AVASTIN [Suspect]
     Active Substance: BEVACIZUMAB
     Indication: BREAST CANCER METASTATIC
     Dosage: 15 MG/KG, EVERY 3 WEEKS
     Route: 042
  3. OMEPRAZOL [Concomitant]
     Active Substance: OMEPRAZOLE
     Indication: PROPHYLAXIS
     Dosage: 20 MG, 1X/DAY
     Dates: start: 20170228
  4. AERO-RED [Concomitant]
     Dosage: 80 MG, UNK
     Route: 048
     Dates: start: 20170329, end: 20170427
  5. PACLITAXEL. [Suspect]
     Active Substance: PACLITAXEL
     Indication: BREAST CANCER METASTATIC
     Dosage: 1, WEEKLY
     Route: 042
  6. ENALAPRIL [Concomitant]
     Active Substance: ENALAPRIL
     Dosage: 5 MG, UNK
     Route: 048
     Dates: start: 20170421, end: 20170427
  7. ZARZIO [Concomitant]
     Active Substance: FILGRASTIM
     Dosage: 300 UG, UNK
     Route: 058
     Dates: start: 20170408, end: 20170412
  8. MOTILIUM [Concomitant]
     Active Substance: DOMPERIDONE
     Dosage: UNK
     Route: 048
     Dates: start: 20170427

REACTIONS (45)
  - Asthenia [Recovered/Resolved]
  - Epistaxis [Recovered/Resolved]
  - Embolism [Recovered/Resolved]
  - White blood cell count decreased [Recovered/Resolved]
  - Dysgeusia [Recovered/Resolved]
  - Pollakiuria [Recovered/Resolved]
  - Metastases to peritoneum [Recovered/Resolved]
  - Constipation [Recovered/Resolved]
  - Haematotoxicity [Recovered/Resolved]
  - Hypertension [Recovered/Resolved]
  - Impaired gastric emptying [Recovered/Resolved]
  - Headache [Recovered/Resolved]
  - Onycholysis [Unknown]
  - Alopecia [Recovered/Resolved]
  - Nausea [Recovered/Resolved]
  - Oedema peripheral [Recovered/Resolved]
  - Dizziness [Recovered/Resolved]
  - Insomnia [Recovered/Resolved]
  - Dysuria [Recovered/Resolved]
  - Abdominal pain [Not Recovered/Not Resolved]
  - Nasopharyngitis [Recovered/Resolved]
  - Neutrophil count decreased [Recovered/Resolved]
  - Bradyphrenia [Recovered/Resolved]
  - Urethritis [Recovered/Resolved]
  - Gait disturbance [Recovered/Resolved]
  - Hypertension [Recovered/Resolved]
  - Ascites [Not Recovered/Not Resolved]
  - Lip oedema [Recovered/Resolved]
  - Apraxia [Recovered/Resolved]
  - Neutropenia [Recovered/Resolved]
  - Hypertensive crisis [Recovered/Resolved]
  - Arthralgia [Recovered/Resolved]
  - Haemoglobin decreased [Recovered/Resolved]
  - Headache [Recovered/Resolved]
  - Escherichia urinary tract infection [Recovered/Resolved]
  - Epistaxis [Recovered/Resolved]
  - Asthenia [Recovered/Resolved]
  - Palmar-plantar erythrodysaesthesia syndrome [Recovered/Resolved]
  - Hypertension [Unknown]
  - Neurotoxicity [Recovered/Resolved with Sequelae]
  - Dermatitis exfoliative generalised [Recovered/Resolved]
  - Visual acuity reduced [Recovered/Resolved]
  - Osteoarthritis [Recovered/Resolved]
  - Dermatitis exfoliative generalised [Recovered/Resolved]
  - Diarrhoea [Recovered/Resolved]

NARRATIVE: CASE EVENT DATE: 20170405
